FAERS Safety Report 19184981 (Version 1)
Quarter: 2021Q2

REPORT INFORMATION
  Report Type: Spontaneous
  Country: US (occurrence: US)
  Receive Date: 20210427
  Receipt Date: 20210427
  Transmission Date: 20210717
  Serious: Yes (Hospitalization, Other)
  Sender: FDA-Public Use
  Company Number: None

PATIENT
  Age: 56 Year
  Sex: Male
  Weight: 114 kg

DRUGS (2)
  1. CASIRIVIMAB. [Suspect]
     Active Substance: CASIRIVIMAB
     Indication: COVID-19
     Dosage: ?          OTHER FREQUENCY:ONCE;?
     Route: 042
     Dates: start: 20210423, end: 20210423
  2. IMDEVIMAB. [Suspect]
     Active Substance: IMDEVIMAB
     Indication: COVID-19
     Dosage: ?          OTHER FREQUENCY:ONCE;?
     Route: 042
     Dates: start: 20210423, end: 20210423

REACTIONS (8)
  - Rhabdomyolysis [None]
  - Vomiting [None]
  - Dyspnoea exertional [None]
  - Fatigue [None]
  - Nausea [None]
  - Malaise [None]
  - Liver function test abnormal [None]
  - Chest pain [None]

NARRATIVE: CASE EVENT DATE: 20210426
